FAERS Safety Report 17983498 (Version 1)
Quarter: 2020Q3

REPORT INFORMATION
  Report Type: Spontaneous
  Country: US (occurrence: US)
  Receive Date: 20200702
  Receipt Date: 20200702
  Transmission Date: 20201103
  Serious: Yes (Hospitalization)
  Sender: FDA-Public Use
  Company Number: None

PATIENT
  Age: 70 Year
  Sex: Female

DRUGS (5)
  1. XELODA [Suspect]
     Active Substance: CAPECITABINE
     Indication: NEOPLASM MALIGNANT
     Route: 048
     Dates: start: 20200617
  2. XELODA [Suspect]
     Active Substance: CAPECITABINE
     Indication: HYPERTENSION
     Route: 048
     Dates: start: 20200617
  3. CAPECITABINE 500MG [Suspect]
     Active Substance: CAPECITABINE
     Indication: NEOPLASM MALIGNANT
     Dates: start: 20200617
  4. XELODA [Concomitant]
     Active Substance: CAPECITABINE
  5. CAPECITABINE 500MG [Suspect]
     Active Substance: CAPECITABINE
     Indication: HYPERTENSION
     Dates: start: 20200617

REACTIONS (2)
  - Vomiting [None]
  - Nausea [None]
